FAERS Safety Report 10071569 (Version 1)
Quarter: 2014Q2

REPORT INFORMATION
  Report Type: Spontaneous
  Country: TR (occurrence: TR)
  Receive Date: 20140410
  Receipt Date: 20140410
  Transmission Date: 20141212
  Serious: Yes (Life-Threatening, Other)
  Sender: FDA-Public Use
  Company Number: TR-ACORDA-ACO_102798_2014

PATIENT
  Age: 60 Year
  Sex: Female

DRUGS (1)
  1. FAMPYRA [Suspect]
     Indication: MULTIPLE SCLEROSIS
     Dosage: UNK
     Route: 065
     Dates: start: 20140321, end: 20140324

REACTIONS (1)
  - Status epilepticus [Recovered/Resolved]
